FAERS Safety Report 4477260-4 (Version None)
Quarter: 2004Q4

REPORT INFORMATION
  Report Type: 
  Country: None (occurrence: None)
  Receive Date: 20041013
  Receipt Date: 20041005
  Transmission Date: 20050328
  Serious: Yes (Death, Hospitalization)
  Sender: FDA-Public Use
  Company Number: F01200403087

PATIENT
  Sex: Female

DRUGS (3)
  1. OXALIPLATIN - SOLUTION - 65 MG/M2 [Suspect]
     Indication: COLORECTAL CANCER
     Dosage: 65 MG/M2 1 /WEEK INTRAVENOUS NOS
     Route: 042
  2. FLUOROURACIL [Suspect]
     Dosage: 2300 OR 1800 MG/M2 AS 48 H CONTINOUS INFUSION, WEEKLY, INTRAVENOUS NOS
     Route: 042
  3. LEUCOVORIN - SOLUTION - 150 MG/M2 [Suspect]
     Dosage: INTRAVENOUS NOS
     Route: 042

REACTIONS (2)
  - DIARRHOEA [None]
  - STOMATITIS [None]
